FAERS Safety Report 15152092 (Version 1)
Quarter: 2018Q3

REPORT INFORMATION
  Report Type: Spontaneous
  Country: FR (occurrence: FR)
  Receive Date: 20180717
  Receipt Date: 20180717
  Transmission Date: 20181010
  Serious: Yes (Life-Threatening, Hospitalization)
  Sender: FDA-Public Use
  Company Number: FR-ROCHE-2155197

PATIENT
  Age: 67 Year
  Sex: Male
  Weight: 80 kg

DRUGS (4)
  1. OXALIPLATINE [Suspect]
     Active Substance: OXALIPLATIN
     Indication: LYMPHOMA
     Route: 042
     Dates: start: 20180607, end: 20180607
  2. DEXAMETHASONE. [Suspect]
     Active Substance: DEXAMETHASONE
     Indication: LYMPHOMA
     Route: 042
     Dates: start: 20180607, end: 20180607
  3. CYTARABINE. [Suspect]
     Active Substance: CYTARABINE
     Indication: LYMPHOMA
     Route: 042
     Dates: start: 20180607, end: 20180607
  4. RITUXIMAB. [Suspect]
     Active Substance: RITUXIMAB
     Indication: LYMPHOMA
     Route: 042
     Dates: start: 20180607, end: 20180607

REACTIONS (2)
  - Cardiogenic shock [Recovered/Resolved]
  - Cardiotoxicity [Recovered/Resolved]

NARRATIVE: CASE EVENT DATE: 20180608
